FAERS Safety Report 5191669-5 (Version None)
Quarter: 2006Q4

REPORT INFORMATION
  Report Type: 
  Country: None (occurrence: None)
  Receive Date: 20061219
  Receipt Date: 20061206
  Transmission Date: 20070319
  Serious: Yes (Other)
  Sender: FDA-Public Use
  Company Number: 2006150986

PATIENT
  Sex: Male

DRUGS (5)
  1. CAVERJECT IMPULSE DUAL CHAMBER SYTEM POWDER, STERILE (ALPROSTADIL) [Suspect]
     Indication: ERECTILE DYSFUNCTION
     Dosage: (2.5 MCG)
     Dates: start: 20060101
  2. NORVASC [Suspect]
     Indication: HYPERTENSION
  3. VIAGRA [Suspect]
     Indication: ERECTILE DYSFUNCTION
     Dosage: (50 MG)
  4. ALL OTHER THERAPEUTIC PRODUCTS (ALL OTHER THERAPEUTIC PRODUCTS) [Suspect]
     Indication: ERECTILE DYSFUNCTION
  5. LEVITRA [Suspect]
     Indication: ERECTILE DYSFUNCTION

REACTIONS (9)
  - DEVICE FAILURE [None]
  - DRUG INEFFECTIVE [None]
  - ERECTION INCREASED [None]
  - GASTRIC DISORDER [None]
  - HERNIA REPAIR [None]
  - HYPERTENSION [None]
  - INCORRECT DOSE ADMINISTERED [None]
  - PHARMACEUTICAL PRODUCT COMPLAINT [None]
  - POST PROCEDURAL COMPLICATION [None]
